FAERS Safety Report 24339826 (Version 6)
Quarter: 2025Q1

REPORT INFORMATION
  Report Type: Spontaneous
  Country: US (occurrence: US)
  Receive Date: 20240919
  Receipt Date: 20250220
  Transmission Date: 20250408
  Serious: No
  Sender: PFIZER
  Company Number: US-PFIZER INC-PV202400121488

PATIENT
  Age: 69 Year
  Sex: Female

DRUGS (2)
  1. IBRANCE [Suspect]
     Active Substance: PALBOCICLIB
     Dates: start: 20240912, end: 2024
  2. IBRANCE [Suspect]
     Active Substance: PALBOCICLIB
     Dates: start: 2024, end: 202412

REACTIONS (7)
  - Bone pain [Not Recovered/Not Resolved]
  - Dyspnoea [Unknown]
  - Myalgia [Not Recovered/Not Resolved]
  - Dry mouth [Unknown]
  - Cough [Unknown]
  - Full blood count abnormal [Unknown]
  - Fatigue [Not Recovered/Not Resolved]

NARRATIVE: CASE EVENT DATE: 20240101
